FAERS Safety Report 24005007 (Version 1)
Quarter: 2024Q2

REPORT INFORMATION
  Report Type: Report from Study
  Country: US (occurrence: US)
  Receive Date: 20240624
  Receipt Date: 20240624
  Transmission Date: 20240715
  Serious: Yes (Other)
  Sender: FDA-Public Use
  Company Number: US-BAYER-2024A088492

PATIENT
  Age: 58 Year
  Sex: Male

DRUGS (1)
  1. ADEMPAS [Suspect]
     Active Substance: RIOCIGUAT
     Indication: Pulmonary arterial hypertension
     Dosage: 0.5 MG, QD
     Route: 048
     Dates: start: 202405

REACTIONS (3)
  - Hypertension [None]
  - Blood pressure systolic increased [None]
  - Incorrect product administration duration [None]

NARRATIVE: CASE EVENT DATE: 20240501
